FAERS Safety Report 7824434-8 (Version None)
Quarter: 2011Q4

REPORT INFORMATION
  Report Type: 
  Country: None (occurrence: None)
  Receive Date: 20111019
  Receipt Date: 20111011
  Transmission Date: 20120403
  Serious: Yes (Life-Threatening, Hospitalization, Other)
  Sender: FDA-Public Use
  Company Number: US-JNJFOC-20111005350

PATIENT
  Sex: Male
  Weight: 90 kg

DRUGS (1)
  1. INTELENCE [Suspect]
     Indication: ANTIVIRAL PROPHYLAXIS
     Dosage: 2X100 MG
     Route: 065
     Dates: start: 20091001, end: 20110501

REACTIONS (8)
  - IMMUNE SYSTEM DISORDER [None]
  - HEPATIC ENZYME INCREASED [None]
  - HYPERSOMNIA [None]
  - HEPATIC PAIN [None]
  - CD4 LYMPHOCYTES DECREASED [None]
  - CD8 LYMPHOCYTES DECREASED [None]
  - ASTHENIA [None]
  - DRUG INEFFECTIVE [None]
